FAERS Safety Report 4687687-3 (Version None)
Quarter: 2005Q2

REPORT INFORMATION
  Report Type: 
  Country: None (occurrence: None)
  Receive Date: 20050608
  Receipt Date: 20050608
  Transmission Date: 20051028
  Serious: Yes (Hospitalization)
  Sender: FDA-Public Use
  Company Number: None

PATIENT
  Sex: Male

DRUGS (1)
  1. RISEDRONATE LU#141370 [Suspect]
     Indication: PROPHYLAXIS
     Dosage: 35MG PO QWK
     Route: 048
     Dates: start: 20050101

REACTIONS (1)
  - NEPHROLITHIASIS [None]
